FAERS Safety Report 9567682 (Version 2)
Quarter: 2013Q3

REPORT INFORMATION
  Report Type: Spontaneous
  Country: US (occurrence: US)
  Receive Date: 20130930
  Receipt Date: 20130930
  Transmission Date: 20140515
  Serious: No
  Sender: FDA-Public Use
  Company Number: US-AMGEN-USASP2012077719

PATIENT
  Age: 16 Year
  Sex: Female

DRUGS (4)
  1. ENBREL [Suspect]
     Indication: JUVENILE IDIOPATHIC ARTHRITIS
     Dosage: 50 MG, QWK
     Route: 058
     Dates: start: 20121107
  2. PRILOSEC                           /00661201/ [Concomitant]
     Dosage: 10 MG, UNK
  3. MOBIC [Concomitant]
     Dosage: 7.5 MG, UNK
  4. TOPAMAX [Concomitant]
     Dosage: 25 MG, UNK

REACTIONS (6)
  - Back pain [Not Recovered/Not Resolved]
  - Ovarian cyst [Not Recovered/Not Resolved]
  - Abdominal pain lower [Not Recovered/Not Resolved]
  - Bacterial infection [Not Recovered/Not Resolved]
  - Arthralgia [Not Recovered/Not Resolved]
  - Injection site pain [Not Recovered/Not Resolved]
